FAERS Safety Report 4807499-7 (Version None)
Quarter: 2005Q4

REPORT INFORMATION
  Report Type: 
  Country: None (occurrence: None)
  Receive Date: 20051024
  Receipt Date: 20051017
  Transmission Date: 20060501
  Serious: Yes (Other)
  Sender: FDA-Public Use
  Company Number: CN-JNJFOC-20051003383

PATIENT
  Sex: Female

DRUGS (4)
  1. SPORANOX [Suspect]
     Route: 042
  2. SPORANOX [Suspect]
     Indication: INFECTION
     Route: 042
  3. SPORANOX [Suspect]
     Route: 048
  4. SPORANOX [Suspect]
     Route: 048

REACTIONS (2)
  - ADRENAL CORTICAL INSUFFICIENCY [None]
  - HYPOTHYROIDISM [None]
